FAERS Safety Report 17185795 (Version 1)
Quarter: 2019Q4

REPORT INFORMATION
  Report Type: Spontaneous
  Country: US (occurrence: US)
  Receive Date: 20191220
  Receipt Date: 20191220
  Transmission Date: 20200122
  Serious: Yes (Disabling, Other)
  Sender: FDA-Public Use
  Company Number: US-REGENERON PHARMACEUTICALS, INC.-2019-73361

PATIENT

DRUGS (2)
  1. EYLEA [Suspect]
     Active Substance: AFLIBERCEPT
     Indication: RETINAL VASCULAR OCCLUSION
     Dosage: EVERY 4 TO 5 WEEKS IN THE RIGHT EYE.
     Route: 031
     Dates: start: 20191009
  2. EYLEA [Suspect]
     Active Substance: AFLIBERCEPT
     Dosage: EVERY 4 TO 5 WEEKS IN THE RIGHT EYE, LAST DOSE
     Route: 031
     Dates: start: 20191113, end: 20191113

REACTIONS (3)
  - Blindness [Unknown]
  - Intraocular pressure increased [Not Recovered/Not Resolved]
  - Visual impairment [Not Recovered/Not Resolved]

NARRATIVE: CASE EVENT DATE: 20191113
